FAERS Safety Report 8832186 (Version 2)
Quarter: 2012Q4

REPORT INFORMATION
  Report Type: 
  Country: US (occurrence: US)
  Receive Date: 20121009
  Receipt Date: 20121119
  Transmission Date: 20130627
  Serious: Yes (Hospitalization, Disabling, Other)
  Sender: FDA-Public Use
  Company Number: US-009507513-1205USA00962

PATIENT

DRUGS (3)
  1. FOSAMAX [Suspect]
     Indication: OSTEOPOROSIS
     Dosage: UNK
     Route: 048
     Dates: start: 2002, end: 20100123
  2. OMEPRAZOLE [Concomitant]
     Dosage: UNK
     Dates: start: 2001
  3. NEXIUM [Concomitant]
     Dosage: UNK
     Dates: start: 2001

REACTIONS (23)
  - Femur fracture [Not Recovered/Not Resolved]
  - Fracture nonunion [Not Recovered/Not Resolved]
  - Cholecystectomy [Unknown]
  - Mastectomy [Unknown]
  - Open reduction of fracture [Unknown]
  - Device failure [Unknown]
  - Intramedullary rod insertion [Unknown]
  - Fracture nonunion [Unknown]
  - Low turnover osteopathy [Not Recovered/Not Resolved]
  - Implantable defibrillator insertion [Unknown]
  - Vitamin D deficiency [Unknown]
  - Hypercholesterolaemia [Unknown]
  - Hypertension [Unknown]
  - Hyperthyroidism [Unknown]
  - Anaemia [Unknown]
  - Fall [Unknown]
  - Sinus tarsi syndrome [Unknown]
  - Fracture delayed union [Unknown]
  - Pain in extremity [Unknown]
  - Hernia repair [Unknown]
  - Internal fixation of fracture [Unknown]
  - Device failure [Unknown]
  - Fracture nonunion [Not Recovered/Not Resolved]
